FAERS Safety Report 19489185 (Version 2)
Quarter: 2022Q4

REPORT INFORMATION
  Report Type: Spontaneous
  Country: DE (occurrence: DE)
  Receive Date: 20210703
  Receipt Date: 20221029
  Transmission Date: 20230113
  Serious: Yes (Hospitalization)
  Sender: FDA-Public Use
  Company Number: DE-ADRED-05815-01

PATIENT
  Age: 68 Year
  Sex: Male
  Weight: 62 kg

DRUGS (13)
  1. FLUOROURACIL [Suspect]
     Active Substance: FLUOROURACIL
     Indication: Product used for unknown indication
     Dosage: ACCORDING TO THE SCHEME, INJECTION / INFUSION SOLUTION
     Route: 042
  2. OXALIPLATIN [Suspect]
     Active Substance: OXALIPLATIN
     Indication: Product used for unknown indication
     Dosage: ACCORDING TO THE SCHEME, INJECTION / INFUSION SOLUTION
     Route: 042
  3. IRINOTECAN [Suspect]
     Active Substance: IRINOTECAN
     Indication: Product used for unknown indication
     Dosage: ACCORDING TO THE SCHEME, INJECTION / INFUSION SOLUTION
     Route: 042
  4. CANDESARTAN CILEXETIL\HYDROCHLOROTHIAZIDE [Concomitant]
     Active Substance: CANDESARTAN CILEXETIL\HYDROCHLOROTHIAZIDE
     Indication: Product used for unknown indication
     Dosage: 1 DOSAGE FORMS DAILY; 16|12.5 MG, 1-0-0-0,CANDECOR COMP. 16MG/12,5MG
     Route: 048
  5. LEUCOVORIN CALCIUM [Concomitant]
     Active Substance: LEUCOVORIN CALCIUM
     Indication: Product used for unknown indication
     Dosage: ACCORDING TO THE SCHEME, INJECTION / INFUSION SOLUTION
     Route: 042
  6. TOUJEO [Concomitant]
     Active Substance: INSULIN GLARGINE
     Indication: Product used for unknown indication
     Dosage: 6 DOSAGE FORMS DAILY; 0-0-0-6, SOLUTION FOR INJECTION / INFUSION, TOUJEO 300 UNITS/ML SOLOSTAR 1.5ML
     Route: 058
  7. LIPEGFILGRASTIM [Concomitant]
     Active Substance: LIPEGFILGRASTIM
     Indication: Product used for unknown indication
     Dosage: ACCORDING TO THE SCHEME, INJECTION / INFUSION SOLUTION
     Route: 058
  8. Loperamide AL [Concomitant]
     Indication: Product used for unknown indication
     Dosage: IF NECESSARY, LOPERAMIDE AL ACUTE
     Route: 048
  9. PANTOPRAZOLE [Concomitant]
     Active Substance: PANTOPRAZOLE
     Indication: Product used for unknown indication
     Dosage: 40 MILLIGRAM DAILY; 1-0-0-0
     Route: 048
  10. NOVORAPID [Concomitant]
     Active Substance: INSULIN ASPART
     Indication: Product used for unknown indication
     Dosage: ACCORDING TO THE SCHEME, INJECTION / INFUSION SOLUTION, NOVORAPID 1000E. 100U./ML
     Route: 058
  11. PANCRELIPASE [Concomitant]
     Active Substance: PANCRELIPASE
     Indication: Product used for unknown indication
     Dosage: 75000 IU (INTERNATIONAL UNIT) DAILY; 1-1-1-0, KREON 25000E.
     Route: 048
  12. ENOXAPARIN [Concomitant]
     Active Substance: ENOXAPARIN
     Indication: Product used for unknown indication
     Dosage: .4 ML DAILY;  0-0-1-0, SOLUTION FOR INJECTION / INFUSION
     Route: 058
  13. CALCIUM GLUCOHEPTONATE [Concomitant]
     Indication: Product used for unknown indication
     Dosage: 1500 MILLIGRAM DAILY; 500 MG, 1-1-1-0

REACTIONS (3)
  - Pyrexia [Unknown]
  - Fatigue [Unknown]
  - Infection [Unknown]
